FAERS Safety Report 19783153 (Version 1)
Quarter: 2021Q3

REPORT INFORMATION
  Report Type: Report from Study
  Country: IT (occurrence: IT)
  Receive Date: 20210903
  Receipt Date: 20210903
  Transmission Date: 20211014
  Serious: Yes (Other)
  Sender: FDA-Public Use
  Company Number: IT-BRISTOL-MYERS SQUIBB COMPANY-BMS-2021-086433

PATIENT
  Age: 77 Year
  Sex: Male

DRUGS (1)
  1. APIXABAN [Suspect]
     Active Substance: APIXABAN
     Indication: PULMONARY EMBOLISM
     Dosage: 1 DOSAGE FORM, DAILY (FREQUENCY NOT REPORTED)
     Route: 065
     Dates: start: 20210101, end: 20210823

REACTIONS (3)
  - Back pain [Not Recovered/Not Resolved]
  - Renal haematoma [Not Recovered/Not Resolved]
  - Anaemia [Not Recovered/Not Resolved]

NARRATIVE: CASE EVENT DATE: 20210728
